FAERS Safety Report 21028957 (Version 2)
Quarter: 2022Q3

REPORT INFORMATION
  Report Type: Spontaneous
  Country: CN (occurrence: None)
  Receive Date: 20220630
  Receipt Date: 20220707
  Transmission Date: 20221027
  Serious: Yes (Hospitalization)
  Sender: FDA-Public Use
  Company Number: 2022A235466

PATIENT
  Age: 82 Year
  Sex: Male
  Weight: 72 kg

DRUGS (1)
  1. IRESSA [Suspect]
     Active Substance: GEFITINIB
     Indication: Small cell lung cancer
     Dosage: ONE TABLET DAILY
     Route: 048

REACTIONS (6)
  - Renal failure [Unknown]
  - Cardiac failure [Unknown]
  - Face oedema [Recovering/Resolving]
  - Oedema peripheral [Recovering/Resolving]
  - Hypoaesthesia [Not Recovered/Not Resolved]
  - Hypokalaemia [Unknown]
